FAERS Safety Report 24892317 (Version 2)
Quarter: 2025Q4

REPORT INFORMATION
  Report Type: Report from Study
  Country: US (occurrence: US)
  Receive Date: 20250128
  Receipt Date: 20251017
  Transmission Date: 20260118
  Serious: No
  Sender: SANOFI AVENTIS
  Company Number: US-SANOFI-02381650

PATIENT
  Age: 76 Year
  Sex: Male

DRUGS (2)
  1. AVALGLUCOSIDASE ALFA-NGPT [Suspect]
     Active Substance: AVALGLUCOSIDASE ALFA-NGPT
     Indication: Glycogen storage disease type II
     Dosage: 3300 (40 MG/KG)
     Route: 065
     Dates: start: 202410
  2. AVALGLUCOSIDASE ALFA-NGPT [Suspect]
     Active Substance: AVALGLUCOSIDASE ALFA-NGPT
     Dosage: 3000 (40 MG/KG) (UNITS UNSPECIFIED), QW
     Route: 065

REACTIONS (1)
  - Off label use [Unknown]
